FAERS Safety Report 12724711 (Version 2)
Quarter: 2016Q3

REPORT INFORMATION
  Report Type: Spontaneous
  Country: US (occurrence: US)
  Receive Date: 20160908
  Receipt Date: 20160910
  Transmission Date: 20161109
  Serious: Yes (Death)
  Sender: FDA-Public Use
  Company Number: PHEH2016US022649

PATIENT
  Sex: Male

DRUGS (1)
  1. SANDOSTATIN LAR DEPOT [Suspect]
     Active Substance: OCTREOTIDE ACETATE
     Indication: CARCINOID SYNDROME
     Dosage: QMO (ONCE A MONTH)
     Route: 030
     Dates: start: 20160801

REACTIONS (1)
  - Carcinoid syndrome [Fatal]

NARRATIVE: CASE EVENT DATE: 20160901
